FAERS Safety Report 12121106 (Version 1)
Quarter: 2016Q1

REPORT INFORMATION
  Report Type: Spontaneous
  Country: FR (occurrence: FR)
  Receive Date: 20160226
  Receipt Date: 20160226
  Transmission Date: 20160526
  Serious: Yes (Hospitalization)
  Sender: FDA-Public Use
  Company Number: FR-FRESENIUS KABI-FK201600995

PATIENT
  Age: 65 Year
  Sex: Male

DRUGS (4)
  1. ERBITUX [Suspect]
     Active Substance: CETUXIMAB
     Route: 042
     Dates: start: 201510, end: 20151228
  2. FLUOROURACIL ACCORD [Suspect]
     Active Substance: FLUOROURACIL
     Indication: LARYNGEAL SQUAMOUS CELL CARCINOMA
     Route: 042
     Dates: start: 201510, end: 20151228
  3. CARBOPLATIN INJECTION 10MG/ML [Suspect]
     Active Substance: CARBOPLATIN
     Indication: LARYNGEAL SQUAMOUS CELL CARCINOMA
     Route: 042
     Dates: start: 20151209, end: 20151228
  4. ERBITUX [Suspect]
     Active Substance: CETUXIMAB
     Indication: LARYNGEAL SQUAMOUS CELL CARCINOMA
     Route: 042
     Dates: start: 201510, end: 20151228

REACTIONS (2)
  - Atrial flutter [Not Recovered/Not Resolved]
  - Atrial fibrillation [Not Recovered/Not Resolved]

NARRATIVE: CASE EVENT DATE: 20151214
